FAERS Safety Report 8229476-9 (Version None)
Quarter: 2012Q1

REPORT INFORMATION
  Report Type: 
  Country: None (occurrence: None)
  Receive Date: 20120322
  Receipt Date: 20120312
  Transmission Date: 20120608
  Serious: No
  Sender: FDA-Public Use
  Company Number: US-B.I. PHARMACEUTICALS,INC./RIDGEFIELD-2012-BP-04648BP

PATIENT
  Age: 34 Year
  Sex: Male

DRUGS (1)
  1. ZANTAC [Suspect]
     Indication: GASTROOESOPHAGEAL REFLUX DISEASE
     Dosage: 300 MG
     Route: 048
     Dates: start: 20111001

REACTIONS (6)
  - TREMOR [None]
  - PALPITATIONS [None]
  - VISUAL IMPAIRMENT [None]
  - DIZZINESS [None]
  - HYPERHIDROSIS [None]
  - BLOOD GLUCOSE DECREASED [None]
